FAERS Safety Report 14837287 (Version 1)
Quarter: 2018Q2

REPORT INFORMATION
  Report Type: Spontaneous
  Country: US (occurrence: US)
  Receive Date: 20180418
  Receipt Date: 20180418
  Transmission Date: 20180711
  Serious: Yes (Other)
  Sender: FDA-Public Use
  Company Number: None

PATIENT
  Age: 63 Year
  Sex: Male
  Weight: 103.4 kg

DRUGS (1)
  1. DARZALEX [Suspect]
     Active Substance: DARATUMUMAB
     Indication: PLASMA CELL MYELOMA
     Route: 042
     Dates: start: 20180319

REACTIONS (6)
  - Nasal congestion [None]
  - Dyspnoea [None]
  - Cough [None]
  - Hypersensitivity [None]
  - Lacrimation increased [None]
  - Infusion related reaction [None]

NARRATIVE: CASE EVENT DATE: 20180319
